FAERS Safety Report 8153484-X (Version None)
Quarter: 2012Q1

REPORT INFORMATION
  Report Type: 
  Country: None (occurrence: None)
  Receive Date: 20120221
  Receipt Date: 20120220
  Transmission Date: 20120608
  Serious: Yes (Death, Hospitalization)
  Sender: FDA-Public Use
  Company Number: ZA-ROCHE-1040089

PATIENT
  Sex: Female
  Weight: 62 kg

DRUGS (1)
  1. XELODA [Suspect]
     Indication: BREAST CANCER
     Dosage: FREQUENCY: DAYS 1-14, 9 AND 21
     Route: 065
     Dates: start: 20120110

REACTIONS (3)
  - SHIGELLA INFECTION [None]
  - NEUTROPENIC SEPSIS [None]
  - DIARRHOEA [None]
